FAERS Safety Report 15683975 (Version 1)
Quarter: 2018Q4

REPORT INFORMATION
  Report Type: Spontaneous
  Country: US (occurrence: US)
  Receive Date: 20181121
  Receipt Date: 20181121
  Transmission Date: 20190205
  Serious: Yes (Hospitalization)
  Sender: FDA-Public Use
  Company Number: None

PATIENT
  Age: 79 Year
  Sex: Male

DRUGS (2)
  1. METOPROLOL. [Suspect]
     Active Substance: METOPROLOL
     Indication: CARDIAC FAILURE CONGESTIVE
     Route: 048
     Dates: start: 20180314, end: 20181108
  2. FUROSEMIDE. [Suspect]
     Active Substance: FUROSEMIDE
     Indication: CARDIAC FAILURE CONGESTIVE
     Route: 048
     Dates: start: 20171008, end: 20181116

REACTIONS (6)
  - Bradycardia [None]
  - Facial bones fracture [None]
  - Hypotension [None]
  - Rib fracture [None]
  - Chronotropic incompetence [None]
  - Loss of consciousness [None]

NARRATIVE: CASE EVENT DATE: 20181104
